FAERS Safety Report 16359898 (Version 4)
Quarter: 2019Q2

REPORT INFORMATION
  Report Type: Spontaneous
  Country: CN (occurrence: CN)
  Receive Date: 20190528
  Receipt Date: 20190625
  Transmission Date: 20190711
  Serious: Yes (Death, Other)
  Sender: FDA-Public Use
  Company Number: CN-ROCHE-2324315

PATIENT
  Age: 25 Year
  Sex: Female

DRUGS (4)
  1. MEDROL [Concomitant]
     Active Substance: METHYLPREDNISOLONE
     Indication: STILL^S DISEASE
     Dosage: 20MG IN THE MORNING, 12MG IN THE EVENING
     Route: 065
     Dates: start: 20140616
  2. GANCICLOVIR. [Suspect]
     Active Substance: GANCICLOVIR
     Indication: ANTIVIRAL PROPHYLAXIS
     Dosage: 2W, TWO MONTHS LATER, THE DRUG WAS ADMINISTERED FOR ANOTHER TWO WEEKS.
     Route: 042
     Dates: start: 201405
  3. PREDNISOLONE. [Concomitant]
     Active Substance: PREDNISOLONE
     Indication: STILL^S DISEASE
     Route: 048
     Dates: start: 201405
  4. METHYLPREDNISOLONE. [Concomitant]
     Active Substance: METHYLPREDNISOLONE
     Indication: STILL^S DISEASE
     Dosage: 80MG IN THE MORNING,40MG IN THE EVENING
     Route: 042
     Dates: start: 20140616

REACTIONS (11)
  - Septic shock [Fatal]
  - Cytomegalovirus infection [Unknown]
  - Neutrophil count decreased [Unknown]
  - Hepatic enzyme increased [Recovering/Resolving]
  - Lung infection [Unknown]
  - Pneumonia [Fatal]
  - Drug resistance [Unknown]
  - Complications of transplanted kidney [Unknown]
  - Respiratory failure [Fatal]
  - Transplant rejection [Unknown]
  - Renal transplant failure [Unknown]
